FAERS Safety Report 4751369-X (Version None)
Quarter: 2005Q3

REPORT INFORMATION
  Report Type: 
  Country: None (occurrence: None)
  Receive Date: 20050823
  Receipt Date: 20050823
  Transmission Date: 20060218
  Serious: Yes (Hospitalization)
  Sender: FDA-Public Use
  Company Number: None

PATIENT
  Age: 85 Year
  Sex: Male
  Weight: 82.1011 kg

DRUGS (1)
  1. WARFARIN     5 MG [Suspect]
     Indication: ATRIAL FIBRILLATION
     Dosage: 5 MG   DAILY   PO
     Route: 048
     Dates: start: 20000901, end: 20050819

REACTIONS (1)
  - GASTROINTESTINAL HAEMORRHAGE [None]
